FAERS Safety Report 15262568 (Version 2)
Quarter: 2018Q3

REPORT INFORMATION
  Report Type: Spontaneous
  Country: IT (occurrence: IT)
  Receive Date: 20180809
  Receipt Date: 20180831
  Transmission Date: 20181010
  Serious: Yes (Life-Threatening)
  Sender: FDA-Public Use
  Company Number: PHHY2018IT068940

PATIENT
  Age: 67 Year
  Sex: Female

DRUGS (1)
  1. CEFTRIAXONE SANDOZ [Suspect]
     Active Substance: CEFTRIAXONE
     Indication: BRONCHITIS
     Dosage: 1 G, QD
     Route: 030
     Dates: start: 20180108

REACTIONS (2)
  - Respiratory failure [Recovering/Resolving]
  - Anaphylactic shock [Recovering/Resolving]

NARRATIVE: CASE EVENT DATE: 20180108
